FAERS Safety Report 7667577-4 (Version None)
Quarter: 2011Q3

REPORT INFORMATION
  Report Type: 
  Country: None (occurrence: None)
  Receive Date: 20110806
  Receipt Date: 20110516
  Transmission Date: 20111222
  Serious: No
  Sender: FDA-Public Use
  Company Number: US-ABBOTT-11P-163-0726154-00

PATIENT
  Sex: Male
  Weight: 90.8 kg

DRUGS (8)
  1. ASPIRIN [Concomitant]
     Indication: CARDIOVASCULAR EVENT PROPHYLAXIS
  2. ATENOLOL [Concomitant]
     Indication: HYPERTENSION
  3. ASCORBIC ACID [Concomitant]
     Indication: VITAMIN SUPPLEMENTATION
  4. PANTOPRAZOLE [Concomitant]
     Indication: GASTRIC DISORDER
  5. SIMVASTATIN [Concomitant]
     Indication: BLOOD CHOLESTEROL INCREASED
  6. FERROUS SULFATE TAB [Concomitant]
     Indication: ANAEMIA
  7. EXFORGE HCT [Concomitant]
     Indication: BLOOD PRESSURE
  8. NIASPAN [Suspect]
     Indication: BLOOD CHOLESTEROL INCREASED
     Dosage: DOCTOR INSTURCTED HIM TO TAKE IT IN AM.
     Dates: end: 20110511

REACTIONS (4)
  - FLUSHING [None]
  - ABDOMINAL PAIN [None]
  - DIARRHOEA [None]
  - MEDICATION ERROR [None]
